FAERS Safety Report 5340116-9 (Version None)
Quarter: 2007Q2

REPORT INFORMATION
  Report Type: 
  Country: None (occurrence: None)
  Receive Date: 20070525
  Receipt Date: 20070525
  Transmission Date: 20071010
  Serious: Yes (Hospitalization)
  Sender: FDA-Public Use
  Company Number: None

PATIENT
  Age: 85 Year
  Sex: Male

DRUGS (10)
  1. TYLENOL (CAPLET) [Suspect]
     Indication: INSOMNIA
     Dosage: TWO AT HS PO
     Route: 048
     Dates: start: 20061231
  2. ZOLPIDEM [Suspect]
     Indication: INSOMNIA
     Dosage: TWO AT HS PO
     Route: 048
     Dates: start: 20061231
  3. CELEBREX [Concomitant]
  4. SOTALOL HYDROCHLORIDE [Concomitant]
  5. ALLEGRA [Concomitant]
  6. INDERAL LA [Concomitant]
  7. TRAMADOL HCL [Concomitant]
  8. SINEMET [Concomitant]
  9. MICARDIS [Concomitant]
  10. LIPITOR [Concomitant]

REACTIONS (3)
  - ADVERSE DRUG REACTION [None]
  - FALL [None]
  - SYNCOPE [None]
